FAERS Safety Report 8564778-8 (Version None)
Quarter: 2012Q3

REPORT INFORMATION
  Report Type: 
  Country: None (occurrence: None)
  Receive Date: 20120803
  Receipt Date: 20120726
  Transmission Date: 20120928
  Serious: Yes (Death, Hospitalization)
  Sender: FDA-Public Use
  Company Number: RU-CELGENEUS-251-21880-12070412

PATIENT
  Sex: Male
  Weight: 64 kg

DRUGS (13)
  1. REVLIMID [Suspect]
     Dosage: 25 MILLIGRAM
     Route: 048
     Dates: start: 20120522, end: 20120611
  2. ZOMETA [Concomitant]
     Indication: PROPHYLAXIS
     Route: 041
     Dates: start: 20110911
  3. DEXAMETHASONE [Suspect]
     Dosage: 40
     Route: 065
     Dates: start: 20120522, end: 20120612
  4. LANSOPRAZOLE [Concomitant]
     Indication: PROPHYLAXIS
     Dosage: 30 MILLIGRAM
     Route: 048
     Dates: start: 20110911, end: 20120711
  5. METFORMIN HCL [Concomitant]
     Dosage: 850 MILLIGRAM
     Route: 048
     Dates: start: 20110916
  6. HEPTRAL [Concomitant]
     Indication: HEPATITIS TOXIC
     Dosage: 800 MILLIGRAM
     Route: 041
     Dates: start: 20120705, end: 20120711
  7. REVLIMID [Suspect]
     Indication: MULTIPLE MYELOMA
     Dosage: 25 MILLIGRAM
     Route: 048
     Dates: start: 20110912, end: 20111002
  8. CEFEPIM [Concomitant]
     Dosage: 4000 MILLIGRAM
     Route: 041
     Dates: start: 20120705, end: 20120711
  9. ASPIRIN [Concomitant]
     Indication: ANTICOAGULANT THERAPY
     Dosage: 100 MILLIGRAM
     Route: 048
     Dates: start: 20110911, end: 20120711
  10. DIABETON [Concomitant]
     Dosage: 90 MILLIGRAM
     Route: 048
     Dates: start: 20110916
  11. EGILOK [Concomitant]
     Dosage: 50 MILLIGRAM
     Route: 048
     Dates: start: 20110825
  12. ACTROPID [Concomitant]
     Dosage: 10 IU (INTERNATIONAL UNIT)
     Route: 058
     Dates: start: 20120710, end: 20120711
  13. DEXAMETHASONE [Suspect]
     Indication: MULTIPLE MYELOMA
     Dosage: 40 MILLIGRAM
     Route: 065
     Dates: start: 20110912, end: 20111003

REACTIONS (1)
  - ACUTE CORONARY SYNDROME [None]
